FAERS Safety Report 7069692-5 (Version None)
Quarter: 2010Q4

REPORT INFORMATION
  Report Type: 
  Country: None (occurrence: None)
  Receive Date: 20101028
  Receipt Date: 20100506
  Transmission Date: 20110411
  Serious: No
  Sender: FDA-Public Use
  Company Number: US-WYE-H15026110

PATIENT
  Sex: Male
  Weight: 86.26 kg

DRUGS (5)
  1. PROTONIX [Suspect]
     Indication: GASTROOESOPHAGEAL REFLUX DISEASE
     Route: 048
     Dates: start: 20010101, end: 20080101
  2. PROTONIX [Suspect]
     Route: 048
     Dates: start: 20080101
  3. PROTONIX [Suspect]
     Route: 048
  4. LIPITOR [Concomitant]
  5. GLUCOPHAG [Concomitant]

REACTIONS (2)
  - DRUG EFFECT DECREASED [None]
  - INTENTIONAL DRUG MISUSE [None]
